FAERS Safety Report 10038931 (Version 1)
Quarter: 2014Q1

REPORT INFORMATION
  Report Type: Spontaneous
  Country: US (occurrence: None)
  Receive Date: 20140306
  Receipt Date: 20140306
  Transmission Date: 20141002
  Serious: Yes (Other)
  Sender: FDA-Public Use
  Company Number: 163-21880-13052684

PATIENT
  Age: 78 Year
  Sex: Female

DRUGS (9)
  1. REVLIMID [Suspect]
     Indication: PLASMA CELL MYELOMA
     Route: 048
     Dates: start: 20080812
  2. ACYCLOVIR(ACICLOVIR) [Concomitant]
  3. AMLODIPINE BESY-BENZEPRIL HCL(UNKNOWN) [Concomitant]
  4. ASPIRIN [Concomitant]
  5. ATENOLOL(ATENOLOL) [Concomitant]
  6. CLONIDINE HCL(CLONIDINE HYDROCHLORIDE) [Concomitant]
  7. GLIPIZIDE XL (GLIPIZIDE) [Concomitant]
  8. HYDROCHLOROTHIAZIDE(HYDROCHLOROTHIAZIDE) [Concomitant]
  9. LASIX(FUROSEMIDE) [Concomitant]

REACTIONS (2)
  - Haematuria [None]
  - Asthenia [None]
